FAERS Safety Report 4790405-1 (Version None)
Quarter: 2005Q4

REPORT INFORMATION
  Report Type: 
  Country: None (occurrence: None)
  Receive Date: 20051006
  Receipt Date: 20050926
  Transmission Date: 20060501
  Serious: Yes (Hospitalization)
  Sender: FDA-Public Use
  Company Number: 200513147FR

PATIENT
  Age: 85 Year
  Sex: Male
  Weight: 64 kg

DRUGS (5)
  1. RIFADIN [Suspect]
     Route: 048
     Dates: start: 20050210, end: 20050216
  2. BRISTOPEN [Suspect]
     Route: 042
     Dates: start: 20050119, end: 20050209
  3. FUCIDINE CAP [Suspect]
     Route: 048
     Dates: start: 20050217, end: 20050420
  4. GENTAMICIN [Suspect]
     Route: 042
     Dates: start: 20050119, end: 20050209
  5. DALACINE [Suspect]
     Route: 048
     Dates: start: 20050210, end: 20050420

REACTIONS (5)
  - ANOREXIA [None]
  - ASTHENIA [None]
  - DIFFICULTY IN WALKING [None]
  - GENERAL PHYSICAL HEALTH DETERIORATION [None]
  - NORMOCHROMIC NORMOCYTIC ANAEMIA [None]
